FAERS Safety Report 23223061 (Version 1)
Quarter: 2023Q4

REPORT INFORMATION
  Report Type: Report from Study
  Country: US (occurrence: US)
  Receive Date: 20231123
  Receipt Date: 20231123
  Transmission Date: 20240109
  Serious: Yes (Other)
  Sender: FDA-Public Use
  Company Number: US-ABBVIE-5504188

PATIENT
  Sex: Female

DRUGS (1)
  1. HUMIRA [Suspect]
     Active Substance: ADALIMUMAB
     Indication: Ankylosing spondylitis
     Dosage: MISSED 2 DOSES?STOP DATE-2023
     Route: 058
     Dates: start: 20230412

REACTIONS (4)
  - Melanocytic naevus [Unknown]
  - Staphylococcal infection [Recovering/Resolving]
  - Ankylosing spondylitis [Unknown]
  - Stress [Unknown]

NARRATIVE: CASE EVENT DATE: 20230101
